FAERS Safety Report 20215916 (Version 2)
Quarter: 2022Q1

REPORT INFORMATION
  Report Type: Spontaneous
  Country: IT (occurrence: None)
  Receive Date: 20211222
  Receipt Date: 20220201
  Transmission Date: 20220424
  Serious: Yes (Death, Life-Threatening, Hospitalization, Other)
  Sender: FDA-Public Use
  Company Number: IT-Hikma Pharmaceuticals USA Inc.-IT-H14001-21-05407

PATIENT
  Age: 66 Year
  Sex: Male

DRUGS (8)
  1. METHYLPREDNISOLONE [Suspect]
     Active Substance: METHYLPREDNISOLONE
     Indication: Product used for unknown indication
     Route: 065
  2. METHYLPREDNISOLONE [Suspect]
     Active Substance: METHYLPREDNISOLONE
     Route: 065
  3. METHYLPREDNISOLONE [Suspect]
     Active Substance: METHYLPREDNISOLONE
     Route: 065
  4. TOCILIZUMAB [Concomitant]
     Active Substance: TOCILIZUMAB
     Indication: Respiratory failure
     Dosage: IN TWO DIFFERENT SITES
     Route: 058
  5. MIDAZOLAM [Concomitant]
     Active Substance: MIDAZOLAM
     Indication: Confusional state
     Dosage: UNKNOWN
     Route: 065
  6. MIDAZOLAM [Concomitant]
     Active Substance: MIDAZOLAM
     Indication: Agitation
  7. MORPHINE [Concomitant]
     Active Substance: MORPHINE
     Indication: Confusional state
     Dosage: UNKNOWN
     Route: 065
  8. MORPHINE [Concomitant]
     Active Substance: MORPHINE
     Indication: Agitation

REACTIONS (8)
  - Acute hepatic failure [Fatal]
  - Herpes simplex reactivation [Fatal]
  - Hypotension [Fatal]
  - Haemorrhage [Fatal]
  - Neurological decompensation [Fatal]
  - Septic shock [Fatal]
  - Acute kidney injury [Fatal]
  - Metabolic acidosis [Fatal]
